FAERS Safety Report 7986299-3 (Version None)
Quarter: 2011Q4

REPORT INFORMATION
  Report Type: 
  Country: None (occurrence: None)
  Receive Date: 20111216
  Receipt Date: 20110125
  Transmission Date: 20120403
  Serious: No
  Sender: FDA-Public Use
  Company Number: US-BRISTOL-MYERS SQUIBB COMPANY-15511637

PATIENT
  Age: 54 Year
  Sex: Female

DRUGS (6)
  1. CRESTOR [Concomitant]
  2. PRISTIQ [Concomitant]
  3. PHENTERMINE [Concomitant]
     Indication: WEIGHT DECREASED
  4. CYMBALTA [Concomitant]
  5. TRAZODONE HCL [Concomitant]
     Dosage: 1DF: 50-100 MG
  6. ABILIFY [Suspect]

REACTIONS (1)
  - WEIGHT INCREASED [None]
